FAERS Safety Report 21389753 (Version 1)
Quarter: 2022Q3

REPORT INFORMATION
  Report Type: Spontaneous
  Country: AR (occurrence: AR)
  Receive Date: 20220929
  Receipt Date: 20220929
  Transmission Date: 20221026
  Serious: Yes (Other)
  Sender: FDA-Public Use
  Company Number: AR-002147023-NVSC2022AR216307

PATIENT
  Sex: Female

DRUGS (1)
  1. XOLAIR [Suspect]
     Active Substance: OMALIZUMAB
     Indication: Chronic spontaneous urticaria
     Dosage: UNK
     Route: 065

REACTIONS (11)
  - Neuropathy peripheral [Unknown]
  - Mucosal inflammation [Unknown]
  - Mucosal haemorrhage [Unknown]
  - Vaginal erosion [Unknown]
  - Burning sensation [Unknown]
  - Vulvovaginal inflammation [Unknown]
  - Vulvovaginal burning sensation [Unknown]
  - Cervix inflammation [Unknown]
  - Neuralgia [Unknown]
  - Urticaria [Recovering/Resolving]
  - Pruritus [Recovering/Resolving]
